FAERS Safety Report 6184698-6 (Version None)
Quarter: 2009Q2

REPORT INFORMATION
  Report Type: 
  Country: None (occurrence: None)
  Receive Date: 20090508
  Receipt Date: 20090506
  Transmission Date: 20091009
  Serious: No
  Sender: FDA-Public Use
  Company Number: US-B.I. PHARMACEUTICALS,INC./RIDGEFIELD-2009-BP-05686PF

PATIENT
  Sex: Female

DRUGS (33)
  1. SPIRIVA [Suspect]
     Indication: CHRONIC OBSTRUCTIVE PULMONARY DISEASE
     Dosage: 18MCG
     Route: 055
     Dates: start: 20080101
  2. REMICADE [Concomitant]
     Indication: RHEUMATOID ARTHRITIS
  3. CYMBALTA [Concomitant]
     Indication: FIBROMYALGIA
     Dosage: 60MG
  4. TRAZODONE HCL [Concomitant]
     Indication: FIBROMYALGIA
     Dosage: 225MG
  5. MIRAPEX [Concomitant]
     Indication: FIBROMYALGIA
     Dosage: 1.5MG
  6. LYRICA [Concomitant]
     Indication: FIBROMYALGIA
     Dosage: 75MG
  7. LYRICA [Concomitant]
  8. MELATONIN [Concomitant]
     Indication: FIBROMYALGIA
  9. PREMPRO LITE [Concomitant]
     Indication: HORMONE REPLACEMENT THERAPY
  10. TOPROL-XL [Concomitant]
     Indication: MITRAL VALVE PROLAPSE
     Dosage: 100MG
  11. FOLIC ACID [Concomitant]
  12. FERREX [Concomitant]
     Dosage: 300MG
  13. ZANTAC [Concomitant]
     Dosage: 300MG
  14. PREVACID [Concomitant]
     Dosage: 30MG
  15. ALLEGRA [Concomitant]
     Indication: HYPERSENSITIVITY
     Dosage: 180MG
  16. ALLEGRA [Concomitant]
     Indication: ASTHMA
  17. SINGULAIR [Concomitant]
     Indication: HYPERSENSITIVITY
     Dosage: 10MG
  18. SINGULAIR [Concomitant]
     Indication: ASTHMA
  19. ADVAIR HFA [Concomitant]
     Indication: HYPERSENSITIVITY
  20. ADVAIR HFA [Concomitant]
     Indication: ASTHMA
  21. SPIRIVA [Concomitant]
     Indication: HYPERSENSITIVITY
     Route: 055
  22. SPIRIVA [Concomitant]
     Indication: ASTHMA
  23. ALBUTEROL [Concomitant]
     Indication: HYPERSENSITIVITY
  24. ALBUTEROL [Concomitant]
     Indication: ASTHMA
  25. SULFASALAZINE [Concomitant]
     Indication: COLITIS ULCERATIVE
     Dosage: 3000MG
  26. MAXALT [Concomitant]
     Indication: MIGRAINE
  27. PHENERGAN [Concomitant]
     Indication: NAUSEA
  28. VICODIN [Concomitant]
     Indication: PAIN
  29. TORADOL [Concomitant]
     Indication: PAIN
  30. CLOBETASOL PROPIONATE [Concomitant]
     Indication: ECZEMA
  31. MUPIROCIN [Concomitant]
     Indication: ECZEMA
  32. PROTOPIC [Concomitant]
     Indication: ECZEMA
  33. ATARAX [Concomitant]
     Indication: ECZEMA

REACTIONS (1)
  - HERPES ZOSTER [None]
